FAERS Safety Report 18480146 (Version 1)
Quarter: 2020Q4

REPORT INFORMATION
  Report Type: Spontaneous
  Country: US (occurrence: US)
  Receive Date: 20201109
  Receipt Date: 20201109
  Transmission Date: 20210114
  Serious: Yes (Hospitalization)
  Sender: FDA-Public Use
  Company Number: None

PATIENT
  Age: 82 Year
  Sex: Male

DRUGS (2)
  1. REBLOZYL [Suspect]
     Active Substance: LUSPATERCEPT-AAMT
     Indication: ANAEMIA
     Dosage: ?          OTHER FREQUENCY:118MG EVERY 21 DAY;?
     Route: 058
     Dates: start: 20200331
  2. REBLOZYL [Suspect]
     Active Substance: LUSPATERCEPT-AAMT
     Indication: MYELODYSPLASTIC SYNDROME
     Dosage: ?          OTHER FREQUENCY:118MG EVERY 21 DAY;?
     Route: 058
     Dates: start: 20200331

REACTIONS (1)
  - Transfusion [None]

NARRATIVE: CASE EVENT DATE: 20201022
